FAERS Safety Report 7179066-4 (Version None)
Quarter: 2010Q4

REPORT INFORMATION
  Report Type: 
  Country: None (occurrence: None)
  Receive Date: 20101221
  Receipt Date: 20101210
  Transmission Date: 20110411
  Serious: Yes (Hospitalization)
  Sender: FDA-Public Use
  Company Number: US-US-EMD SERONO, INC.-233112J09USA

PATIENT
  Sex: Female
  Weight: 91 kg

DRUGS (11)
  1. REBIF [Suspect]
     Indication: MULTIPLE SCLEROSIS
     Route: 058
     Dates: start: 20070813
  2. SOTALOL [Concomitant]
     Indication: ATRIAL FIBRILLATION
     Route: 065
  3. METOPROLOL [Concomitant]
     Indication: ATRIAL FIBRILLATION
     Route: 065
  4. PROZAC [Concomitant]
     Route: 065
     Dates: end: 20091117
  5. ENTOCORT EC [Concomitant]
     Indication: CROHN'S DISEASE
     Route: 065
     Dates: start: 20090101
  6. SIMVASTATIN [Concomitant]
     Indication: ATRIAL FIBRILLATION
     Route: 065
  7. ASPIRIN [Concomitant]
     Route: 065
  8. FISH OIL [Concomitant]
     Route: 065
  9. CELEXA [Concomitant]
     Route: 065
     Dates: start: 20091117
  10. MALTEC [Concomitant]
  11. COUMADIN [Concomitant]

REACTIONS (5)
  - ARRHYTHMIA [None]
  - ATRIAL FIBRILLATION [None]
  - ATRIAL FLUTTER [None]
  - INFLUENZA LIKE ILLNESS [None]
  - MUSCULOSKELETAL STIFFNESS [None]
